FAERS Safety Report 17134761 (Version 3)
Quarter: 2020Q1

REPORT INFORMATION
  Report Type: Report from Study
  Country: CO (occurrence: CO)
  Receive Date: 20191210
  Receipt Date: 20200205
  Transmission Date: 20200409
  Serious: Yes (Hospitalization)
  Sender: FDA-Public Use
  Company Number: NVSC2019CO059235

PATIENT
  Sex: Male

DRUGS (2)
  1. TAFINLAR [Suspect]
     Active Substance: DABRAFENIB MESYLATE
     Indication: METASTATIC MALIGNANT MELANOMA
     Dosage: 300 MG, QD
     Route: 048
     Dates: start: 20191206
  2. MEKINIST [Suspect]
     Active Substance: TRAMETINIB DIMETHYL SULFOXIDE
     Indication: METASTATIC MALIGNANT MELANOMA
     Dosage: 2 MG, QD
     Route: 048
     Dates: start: 20191206

REACTIONS (8)
  - Pyrexia [Unknown]
  - Inappropriate schedule of product administration [Unknown]
  - Somnolence [Unknown]
  - Headache [Unknown]
  - Peripheral swelling [Unknown]
  - Decreased appetite [Unknown]
  - Psychiatric symptom [Unknown]
  - Dependent personality disorder [Unknown]
